FAERS Safety Report 16385999 (Version 1)
Quarter: 2019Q2

REPORT INFORMATION
  Report Type: Report from Study
  Country: US (occurrence: US)
  Receive Date: 20190603
  Receipt Date: 20190603
  Transmission Date: 20190711
  Serious: No
  Sender: FDA-Public Use
  Company Number: US-SUNOVION-2019SUN002268

PATIENT
  Age: 70 Year
  Weight: 52.15 kg

DRUGS (7)
  1. PROAIR HFA [Concomitant]
     Active Substance: ALBUTEROL SULFATE
     Dosage: 108 (90 BASE) MCG/ACT 16 DAYS
     Route: 065
  2. ATORVASTATIN ACTAVIS [Concomitant]
     Active Substance: ATORVASTATIN
     Dosage: 40 MG
     Route: 048
  3. CILOSTAZOL AL [Concomitant]
     Active Substance: CILOSTAZOL
     Dosage: 50 MG
     Route: 048
  4. LISINOPRIL AN [Concomitant]
     Dosage: 10 MG
     Route: 048
  5. LONHALA MAGNAIR [Suspect]
     Active Substance: GLYCOPYRROLATE
     Dosage: UNK
     Route: 055
  6. FUROSEMIDE. [Concomitant]
     Active Substance: FUROSEMIDE
     Dosage: 40 MG
     Route: 048
  7. LEFLUNOMIDE MYLAN [Concomitant]
     Active Substance: LEFLUNOMIDE
     Dosage: 10 MG
     Route: 048

REACTIONS (2)
  - Hypersensitivity [Unknown]
  - Swollen tongue [Unknown]

NARRATIVE: CASE EVENT DATE: 20190528
